FAERS Safety Report 9459729 (Version 1)
Quarter: 2013Q3

REPORT INFORMATION
  Report Type: Spontaneous
  Country: US (occurrence: US)
  Receive Date: 20130815
  Receipt Date: 20130815
  Transmission Date: 20140515
  Serious: Yes (Hospitalization)
  Sender: FDA-Public Use
  Company Number: US-NOVOPROD-385038

PATIENT
  Age: 9 Year
  Sex: Female

DRUGS (3)
  1. NORDITROPIN FLEXPRO 10 MG/ML [Suspect]
     Indication: HYPOPITUITARISM
     Dosage: 0.7 MG, QD
     Route: 058
     Dates: start: 20110527
  2. LEVOTHYROXINE [Concomitant]
     Indication: PRODUCT USED FOR UNKNOWN INDICATION
     Dosage: UNK
  3. HYDROCORTISONE [Concomitant]
     Indication: PRODUCT USED FOR UNKNOWN INDICATION
     Dosage: UNK

REACTIONS (1)
  - Hip surgery [Unknown]
